FAERS Safety Report 20361373 (Version 1)
Quarter: 2022Q1

REPORT INFORMATION
  Report Type: 
  Country: None (occurrence: None)
  Receive Date: 20220121
  Receipt Date: 20220121
  Transmission Date: 20220423
  Serious: Yes (Other)
  Sender: FDA-Public Use
  Company Number: None

PATIENT
  Age: 40 Year
  Sex: Female

DRUGS (1)
  1. CALCITRIOL [Suspect]
     Active Substance: CALCITRIOL

REACTIONS (2)
  - Swelling face [Recovered/Resolved]
  - Chest discomfort [Recovered/Resolved]
